FAERS Safety Report 23148808 (Version 1)
Quarter: 2023Q4

REPORT INFORMATION
  Report Type: Spontaneous
  Country: GB (occurrence: GB)
  Receive Date: 20231106
  Receipt Date: 20231106
  Transmission Date: 20240110
  Serious: Yes (Other)
  Sender: FDA-Public Use
  Company Number: None

PATIENT
  Age: 68 Year
  Sex: Female
  Weight: 51 kg

DRUGS (8)
  1. ATORVASTATIN [Suspect]
     Active Substance: ATORVASTATIN
     Indication: Blood cholesterol increased
     Dosage: UNIT DOSE: 80MG
     Route: 065
     Dates: start: 20220223
  2. LANSOPRAZOLE [Suspect]
     Active Substance: LANSOPRAZOLE
     Indication: Prophylaxis against gastrointestinal ulcer
     Dosage: 30 MILLIGRAM DAILY; 30MG DAILY DURATION: 145 DAYS
     Route: 065
     Dates: start: 20220225, end: 20220720
  3. ASPIRIN [Concomitant]
     Active Substance: ASPIRIN
     Indication: Thrombosis prophylaxis
     Dosage: UNIT DOSE: 75MG
     Dates: start: 20220223
  4. BISOPROLOL [Concomitant]
     Active Substance: BISOPROLOL\BISOPROLOL FUMARATE
     Indication: Myocardial infarction
     Dosage: REDUCED TO 1.25MG, UNIT DOSE: 5MG
     Dates: start: 20220222
  5. CLOPIDOGREL [Concomitant]
     Active Substance: CLOPIDOGREL BISULFATE
     Indication: Myocardial infarction
     Dosage: UNIT DOSE: 75MG, DURATION: 3MONTHS
     Dates: start: 202211, end: 202302
  6. FUROSEMIDE [Concomitant]
     Active Substance: FUROSEMIDE
     Indication: Myocardial infarction
     Dosage: UNIT DOSE: 40MG, DURATION: 23 DAYS
     Dates: start: 20220223, end: 20220318
  7. RAMIPRIL [Concomitant]
     Active Substance: RAMIPRIL
     Indication: Hypertension
     Dates: start: 20220223
  8. TICAGRELOR [Concomitant]
     Active Substance: TICAGRELOR
     Indication: Coronary arterial stent insertion
     Dosage: UNIT DOSE: 90MG, DURATION: 9 MONTHS
     Dates: start: 20220222, end: 202211

REACTIONS (6)
  - Colitis microscopic [Recovering/Resolving]
  - Abnormal loss of weight [Unknown]
  - Flatulence [Unknown]
  - Diarrhoea [Unknown]
  - Osteopenia [Unknown]
  - Gastrointestinal disorder [Unknown]

NARRATIVE: CASE EVENT DATE: 20220301
